FAERS Safety Report 24280088 (Version 1)
Quarter: 2024Q3

REPORT INFORMATION
  Report Type: Spontaneous
  Country: BR (occurrence: BR)
  Receive Date: 20240904
  Receipt Date: 20240904
  Transmission Date: 20241017
  Serious: Yes (Hospitalization)
  Sender: ASTELLAS
  Company Number: BR-ASTELLAS-2024-AER-003813

PATIENT
  Age: 57 Year
  Sex: Female

DRUGS (6)
  1. TACROLIMUS [Suspect]
     Active Substance: TACROLIMUS
     Indication: Liver transplant
     Route: 065
  2. ISAVUCONAZOLE [Suspect]
     Active Substance: ISAVUCONAZOLE
     Indication: Cutaneous sporotrichosis
     Route: 048
  3. AMPHOTERICIN B [Concomitant]
     Active Substance: AMPHOTERICIN B
     Indication: Cutaneous sporotrichosis
     Route: 065
  4. EVEROLIMUS [Concomitant]
     Active Substance: EVEROLIMUS
     Indication: Liver transplant
     Route: 065
  5. ITRACONAZOLE [Concomitant]
     Active Substance: ITRACONAZOLE
     Indication: Cutaneous sporotrichosis
     Route: 065
  6. TERBINAFINE [Concomitant]
     Active Substance: TERBINAFINE
     Indication: Cutaneous sporotrichosis
     Route: 065

REACTIONS (4)
  - Cutaneous sporotrichosis [Unknown]
  - Disseminated sporotrichosis [Unknown]
  - Symptom recurrence [Unknown]
  - Off label use [Unknown]
